FAERS Safety Report 8472699-4 (Version None)
Quarter: 2012Q2

REPORT INFORMATION
  Report Type: 
  Country: None (occurrence: None)
  Receive Date: 20120622
  Receipt Date: 20120622
  Transmission Date: 20120825
  Serious: No
  Sender: FDA-Public Use
  Company Number: None

PATIENT
  Age: 62 Year
  Sex: Male

DRUGS (1)
  1. METOPROLOL SUCCINATE [Suspect]
     Indication: CARDIAC OPERATION
     Dosage: 25 MG ONCE PO
     Route: 048
     Dates: start: 20110525, end: 20110525

REACTIONS (1)
  - ATRIOVENTRICULAR BLOCK COMPLETE [None]
